FAERS Safety Report 7081571-6 (Version None)
Quarter: 2010Q4

REPORT INFORMATION
  Report Type: 
  Country: None (occurrence: None)
  Receive Date: 20101103
  Receipt Date: 20101029
  Transmission Date: 20110411
  Serious: Yes (Other)
  Sender: FDA-Public Use
  Company Number: JP-BRISTOL-MYERS SQUIBB COMPANY-15336969

PATIENT
  Age: 67 Year
  Sex: Male

DRUGS (1)
  1. HYDREA [Suspect]
     Indication: POLYCYTHAEMIA VERA
     Route: 048

REACTIONS (2)
  - BRONCHIOLOALVEOLAR CARCINOMA [None]
  - LIP AND/OR ORAL CAVITY CANCER [None]
